FAERS Safety Report 4829463-4 (Version None)
Quarter: 2005Q4

REPORT INFORMATION
  Report Type: 
  Country: None (occurrence: None)
  Receive Date: 20051028
  Receipt Date: 20041017
  Transmission Date: 20060501
  Serious: Yes (Hospitalization)
  Sender: FDA-Public Use
  Company Number: US014122

PATIENT
  Age: 61 Year
  Sex: Female
  Weight: 61.2356 kg

DRUGS (5)
  1. PROVIGIL [Suspect]
     Indication: FATIGUE
     Dosage: 200 MG QD ORAL; 200 MG TID ORAL
     Route: 048
     Dates: start: 20041012, end: 20041012
  2. . [Concomitant]
  3. HYZAAR [Concomitant]
  4. ZOCOR [Concomitant]
  5. . [Concomitant]

REACTIONS (2)
  - CHEST DISCOMFORT [None]
  - DYSPNOEA [None]
